FAERS Safety Report 16444165 (Version 1)
Quarter: 2019Q2

REPORT INFORMATION
  Report Type: Other
  Country: JP (occurrence: JP)
  Receive Date: 20190618
  Receipt Date: 20190618
  Transmission Date: 20190711
  Serious: Yes (Hospitalization)
  Sender: FDA-Public Use
  Company Number: JP-VISTAPHARM, INC.-VER201905-000304

PATIENT
  Age: 66 Year
  Sex: Female

DRUGS (1)
  1. PREDNISOLONE. [Suspect]
     Active Substance: PREDNISOLONE
     Indication: AUTOIMMUNE HEPATITIS
     Dosage: 15 MG

REACTIONS (1)
  - Subcutaneous abscess [Unknown]
